FAERS Safety Report 9734774 (Version 3)
Quarter: 2014Q3

REPORT INFORMATION
  Report Type: Report from Study
  Country: FR (occurrence: FR)
  Receive Date: 20131206
  Receipt Date: 20140930
  Transmission Date: 20150326
  Serious: Yes (Hospitalization, Other)
  Sender: FDA-Public Use
  Company Number: FR-ROCHE-1231655

PATIENT
  Age: 64 Year
  Sex: Female
  Weight: 55 kg

DRUGS (4)
  1. MK-3034 [Suspect]
     Active Substance: BOCEPREVIR
     Indication: CHRONIC HEPATITIS C
     Dosage: TEMPORARILY INTERRUPTED ON 22/JAN/2013
     Route: 048
     Dates: start: 20121228
  2. PEGINTERFERON ALFA-2A [Suspect]
     Active Substance: PEGINTERFERON ALFA-2A
     Indication: CHRONIC HEPATITIS C
     Dosage: TEMPORARILY INTERRUPTED ON 22/JAN/2013
     Route: 058
     Dates: start: 20121031
  3. RIBAVIRIN. [Suspect]
     Active Substance: RIBAVIRIN
     Indication: CHRONIC HEPATITIS C
     Route: 048
     Dates: start: 20121031, end: 20121205
  4. RIBAVIRIN. [Suspect]
     Active Substance: RIBAVIRIN
     Dosage: TEMPORARILY INTERRUPTED ON 22/JAN/2013
     Route: 048
     Dates: start: 20121206

REACTIONS (5)
  - Anaemia [Recovered/Resolved]
  - Hepatic cancer [Recovered/Resolved]
  - Therapeutic embolisation [Recovered/Resolved]
  - Anaemia [Not Recovered/Not Resolved]
  - Neutropenia [Recovered/Resolved]

NARRATIVE: CASE EVENT DATE: 20121113
